FAERS Safety Report 15753809 (Version 1)
Quarter: 2018Q4

REPORT INFORMATION
  Report Type: Report from Study
  Country: IT (occurrence: IT)
  Receive Date: 20181222
  Receipt Date: 20181222
  Transmission Date: 20190205
  Serious: Yes (Other)
  Sender: FDA-Public Use
  Company Number: IT-TEVA-2018-IT-989618

PATIENT
  Age: 47 Year
  Sex: Male

DRUGS (6)
  1. SURMONTIL [Concomitant]
     Active Substance: TRIMIPRAMINE MALEATE
  2. RIVOTRIL [Concomitant]
     Active Substance: CLONAZEPAM
  3. GABAPENTIN. [Concomitant]
     Active Substance: GABAPENTIN
  4. VALSARTAN. [Suspect]
     Active Substance: VALSARTAN
     Route: 065
  5. CARBOLITHIUM 150 MG CAPSULE RIGIDE [Concomitant]
     Active Substance: LITHIUM CARBONATE
  6. SYCREST [Concomitant]
     Active Substance: ASENAPINE MALEATE

REACTIONS (5)
  - Asthenia [Recovering/Resolving]
  - Hypertensive crisis [Recovering/Resolving]
  - Hypertension [Recovering/Resolving]
  - Headache [Recovering/Resolving]
  - Drug ineffective [Recovering/Resolving]

NARRATIVE: CASE EVENT DATE: 20181109
